FAERS Safety Report 4582139-3 (Version None)
Quarter: 2005Q1

REPORT INFORMATION
  Report Type: 
  Country: None (occurrence: None)
  Receive Date: 20050119
  Receipt Date: 20040126
  Transmission Date: 20050727
  Serious: Yes (Other)
  Sender: FDA-Public Use
  Company Number: A03200400223

PATIENT
  Age: 80 Year
  Sex: Female

DRUGS (1)
  1. PLAVIX [Suspect]
     Indication: VASCULAR RUPTURE
     Dosage: 75 MG QD - ORAL; A FEW YEARS
     Route: 048
     Dates: end: 20040101

REACTIONS (2)
  - EYE HAEMORRHAGE [None]
  - VISION BLURRED [None]
